FAERS Safety Report 21207551 (Version 1)
Quarter: 2022Q3

REPORT INFORMATION
  Report Type: Spontaneous
  Country: US (occurrence: US)
  Receive Date: 20220812
  Receipt Date: 20220812
  Transmission Date: 20221027
  Serious: No
  Sender: FDA-Public Use
  Company Number: US-SA-SAC20220808002232

PATIENT
  Age: 20 Year
  Sex: Female
  Weight: 54.4 kg

DRUGS (1)
  1. DUPIXENT [Suspect]
     Active Substance: DUPILUMAB
     Indication: Dermatitis atopic
     Dosage: 300 MG, QOW
     Route: 058
     Dates: start: 20220714

REACTIONS (5)
  - Musculoskeletal stiffness [Recovered/Resolved]
  - Muscle strain [Recovered/Resolved]
  - Hyperhidrosis [Unknown]
  - Eczema [Recovering/Resolving]
  - Arthralgia [Recovered/Resolved]
